FAERS Safety Report 9601207 (Version 4)
Quarter: 2022Q2

REPORT INFORMATION
  Report Type: Spontaneous
  Country: FI (occurrence: FI)
  Receive Date: 20131005
  Receipt Date: 20220614
  Transmission Date: 20220721
  Serious: Yes (Other)
  Sender: FDA-Public Use
  Company Number: FI-JNJFOC-2010012535

PATIENT
  Age: 46 Year
  Sex: Male
  Weight: 92 kg

DRUGS (16)
  1. NICOTINE [Suspect]
     Active Substance: NICOTINE
     Indication: Smoking cessation therapy
     Dosage: DAILY DOSE TEXT: UNKNOWN?1/2 TABLET DAILY;
     Route: 062
     Dates: start: 2006
  2. NICOTINE [Suspect]
     Active Substance: NICOTINE
     Indication: Smoking cessation therapy
     Dosage: DAILY DOSE TEXT: 2MG AND 4MG UNSPECIFIED
     Route: 048
     Dates: start: 2006, end: 2007
  3. VARENICLINE TARTRATE [Interacting]
     Active Substance: VARENICLINE TARTRATE
     Indication: Nicotine dependence
     Dosage: DAILY DOSE TEXT: 0.5MG, 1X/DAY
     Route: 048
     Dates: start: 20070702, end: 20070704
  4. VARENICLINE TARTRATE [Interacting]
     Active Substance: VARENICLINE TARTRATE
     Dosage: DAILY DOSE TEXT: 0.5MG, 2X/DAY
     Route: 048
     Dates: start: 20070705, end: 20070708
  5. VARENICLINE TARTRATE [Interacting]
     Active Substance: VARENICLINE TARTRATE
     Dosage: DAILY DOSE TEXT: 1MG, 2X/ DAY
     Route: 048
     Dates: start: 20070709, end: 200711
  6. AMOXICILLIN TRIHYDRATE [Interacting]
     Active Substance: AMOXICILLIN
     Indication: Sinusitis
     Route: 048
     Dates: start: 20071105, end: 20071109
  7. AMOXICILLIN TRIHYDRATE [Interacting]
     Active Substance: AMOXICILLIN
     Indication: Influenza
  8. PHENYLPROPANOLAMINE [Interacting]
     Active Substance: PHENYLPROPANOLAMINE
     Indication: Product used for unknown indication
     Route: 048
     Dates: start: 20071105
  9. CIPRALEX [Suspect]
     Active Substance: ESCITALOPRAM OXALATE
     Indication: Product used for unknown indication
     Route: 065
     Dates: start: 20071218
  10. METOCLOPRAMIDE [Suspect]
     Active Substance: METOCLOPRAMIDE
     Indication: Product used for unknown indication
     Route: 065
  11. SERTRALINE [Suspect]
     Active Substance: SERTRALINE HYDROCHLORIDE
     Indication: Product used for unknown indication
     Dosage: 50MG 1/2 TABLET DAILY
     Route: 065
     Dates: start: 200903
  12. PENTOXYVERINE CITRATE [Concomitant]
     Active Substance: PENTOXYVERINE CITRATE
     Indication: Product used for unknown indication
     Route: 065
     Dates: start: 20071001
  13. CLARITHROMYCIN [Concomitant]
     Active Substance: CLARITHROMYCIN
     Indication: Acute sinusitis
     Route: 048
  14. DOXYCYCLINE [Concomitant]
     Active Substance: DOXYCYCLINE
     Indication: Oropharyngeal pain
     Route: 048
     Dates: start: 20071001
  15. AZITHROMYCIN [Concomitant]
     Active Substance: AZITHROMYCIN
     Indication: Influenza
     Route: 048
     Dates: start: 20071024
  16. HAVRIX [Concomitant]
     Active Substance: HEPATITIS A VIRUS STRAIN HM175 ANTIGEN (FORMALDEHYDE INACTIVATED)
     Indication: Hepatitis A
     Dosage: DAILY DOSE TEXT: UNKNOWN
     Route: 030
     Dates: start: 20070629, end: 20070629

REACTIONS (82)
  - Hallucination [Unknown]
  - Withdrawal syndrome [Recovered/Resolved]
  - Restlessness [Not Recovered/Not Resolved]
  - Agitation [Unknown]
  - Drug interaction [Recovered/Resolved]
  - Depression [Not Recovered/Not Resolved]
  - Mood swings [Unknown]
  - Hyposmia [Not Recovered/Not Resolved]
  - Acute sinusitis [Not Recovered/Not Resolved]
  - Hepatic steatosis [Not Recovered/Not Resolved]
  - Hypothyroidism [Unknown]
  - Adjustment disorder with mixed anxiety and depressed mood [Unknown]
  - Loss of personal independence in daily activities [Unknown]
  - Vertigo [Unknown]
  - Tinnitus [Not Recovered/Not Resolved]
  - Panic reaction [Unknown]
  - Infection [Recovered/Resolved]
  - Sense of oppression [Recovered/Resolved]
  - Weight increased [Not Recovered/Not Resolved]
  - Fatigue [Recovering/Resolving]
  - Euphoric mood [Recovered/Resolved]
  - Blood cholesterol increased [Unknown]
  - Overweight [Unknown]
  - Influenza [Not Recovered/Not Resolved]
  - Upper respiratory tract infection [Unknown]
  - Erythema [Recovered/Resolved]
  - Nausea [Recovered/Resolved]
  - Fear [Unknown]
  - Personality change [Unknown]
  - Swelling [Not Recovered/Not Resolved]
  - Lower respiratory tract infection [Unknown]
  - Musculoskeletal discomfort [Unknown]
  - Dyspnoea [Recovered/Resolved]
  - Drug dependence [Unknown]
  - Overdose [Recovered/Resolved]
  - Hypersensitivity [Not Recovered/Not Resolved]
  - Palpitations [Recovered/Resolved]
  - Dizziness [Unknown]
  - Dyspnoea [Unknown]
  - Feeling cold [Recovered/Resolved]
  - Agitation [Unknown]
  - Loss of libido [Not Recovered/Not Resolved]
  - Secondary hypogonadism [Unknown]
  - Gastric disorder [Recovering/Resolving]
  - Adrenal insufficiency [Unknown]
  - Blood glucose increased [Unknown]
  - Erythema [Unknown]
  - Acute sinusitis [Recovered/Resolved]
  - Hyperhidrosis [Recovered/Resolved]
  - Cerebrovascular accident [Unknown]
  - Influenza [Unknown]
  - Hypopituitarism [Unknown]
  - Erectile dysfunction [Recovered/Resolved]
  - General physical health deterioration [Unknown]
  - Weight increased [Not Recovered/Not Resolved]
  - Confusional state [Unknown]
  - Neurotoxicity [Unknown]
  - Confusional state [Unknown]
  - Depression [Not Recovered/Not Resolved]
  - Hyposmia [Unknown]
  - Snoring [Not Recovered/Not Resolved]
  - Musculoskeletal discomfort [Recovered/Resolved]
  - Dyskinesia [Unknown]
  - Vasodilatation [Recovered/Resolved]
  - Obesity [Unknown]
  - Parkinson^s disease [Unknown]
  - Aggression [Unknown]
  - Memory impairment [Unknown]
  - Akathisia [Unknown]
  - Abdominal discomfort [Recovered/Resolved]
  - Craniocerebral injury [Unknown]
  - Olfacto genital dysplasia [Unknown]
  - Hepatic steatosis [Unknown]
  - Hypersensitivity [Unknown]
  - Feeling abnormal [Unknown]
  - Tremor [Unknown]
  - Increased appetite [Not Recovered/Not Resolved]
  - Anxiety [Recovering/Resolving]
  - Medication error [Recovered/Resolved]
  - Nightmare [Not Recovered/Not Resolved]
  - Sleep disorder [Not Recovered/Not Resolved]
  - Irritability [Recovered/Resolved]

NARRATIVE: CASE EVENT DATE: 20060101
